FAERS Safety Report 5072178-0 (Version None)
Quarter: 2006Q3

REPORT INFORMATION
  Report Type: 
  Country: None (occurrence: None)
  Receive Date: 20060801
  Receipt Date: 20060719
  Transmission Date: 20061208
  Serious: Yes (Other)
  Sender: FDA-Public Use
  Company Number: 2006090059

PATIENT
  Age: 85 Year
  Sex: Female
  Weight: 94.3482 kg

DRUGS (19)
  1. XALATAN [Suspect]
     Indication: DRUG USE FOR UNKNOWN INDICATION
     Dosage: (2.5 ML), OPHTHALMIC
     Route: 047
     Dates: start: 20060401
  2. NEURONTIN [Concomitant]
  3. DIGOXIN [Concomitant]
  4. DILTIAZEM [Concomitant]
  5. NORVASC [Concomitant]
  6. HYZAAR [Concomitant]
  7. FOLIC ACID [Concomitant]
  8. ALL OTHER THERAPEUTIC PRODUCTS (ALL OTHER THERAPEUTIC PRODUCTS) [Concomitant]
  9. QUININE SULFATE [Concomitant]
  10. K-DUR 10 [Concomitant]
  11. LASIX [Concomitant]
  12. NEXIUM [Concomitant]
  13. SYNTHROID [Concomitant]
  14. .................... [Concomitant]
  15. VITAMIN C (VITAMIN C) [Concomitant]
  16. CALCIUM (CALCIUM) [Concomitant]
  17. ALL OTHER THERAPEUTIC PRODUCTS (ALL OTHER THERAPEUTIC PRODUCTS) [Concomitant]
  18. MAGNESIUM (MAGNESIUM) [Concomitant]
  19. ACTOS [Concomitant]

REACTIONS (3)
  - DIABETES MELLITUS [None]
  - EYE DISORDER [None]
  - VISION BLURRED [None]
